FAERS Safety Report 10029040 (Version 1)
Quarter: 2014Q1

REPORT INFORMATION
  Report Type: Report from Study
  Country: US (occurrence: US)
  Receive Date: 20140321
  Receipt Date: 20140321
  Transmission Date: 20141002
  Serious: Yes (Death)
  Sender: FDA-Public Use
  Company Number: US-B.I. PHARMACEUTICALS,INC./RIDGEFIELD-2014-BI-12184II

PATIENT
  Age: 58 Year
  Sex: Male
  Weight: 60.1 kg

DRUGS (6)
  1. BIBW 2992 [Suspect]
     Indication: SQUAMOUS CELL CARCINOMA OF THE TONGUE
     Dosage: 30 MG
     Route: 048
     Dates: start: 20140114, end: 20140202
  2. AMLODIPINE [Concomitant]
     Dosage: 5 MG
     Route: 048
  3. IBUPROFEN [Concomitant]
     Route: 048
  4. OXYCONTIN [Concomitant]
     Dosage: 40 MG
     Route: 048
  5. OXYCODONE [Concomitant]
     Dosage: 60 MG
     Route: 048
  6. LIDOCAINE HCL [Concomitant]
     Route: 065

REACTIONS (1)
  - Sepsis [Fatal]
